FAERS Safety Report 6995068-2 (Version None)
Quarter: 2010Q3

REPORT INFORMATION
  Report Type: 
  Country: None (occurrence: None)
  Receive Date: 20100917
  Receipt Date: 20090306
  Transmission Date: 20110219
  Serious: Yes (Other)
  Sender: FDA-Public Use
  Company Number: HQWYE754001SEP04

PATIENT
  Sex: Female
  Weight: 81.72 kg

DRUGS (5)
  1. PREMPRO [Suspect]
     Indication: HORMONE REPLACEMENT THERAPY
  2. PREMPRO [Suspect]
     Indication: MENOPAUSAL SYMPTOMS
  3. ASPIRIN [Concomitant]
  4. DITROPAN [Concomitant]
  5. LIPITOR [Concomitant]

REACTIONS (1)
  - BREAST CANCER [None]
